FAERS Safety Report 5004266-9 (Version None)
Quarter: 2006Q2

REPORT INFORMATION
  Report Type: 
  Country: None (occurrence: None)
  Receive Date: 20060517
  Receipt Date: 20050824
  Transmission Date: 20061013
  Serious: Yes (Hospitalization, Disabling)
  Sender: FDA-Public Use
  Company Number: US-MERCK-0508USA04129

PATIENT
  Age: 74 Year
  Sex: Male
  Weight: 86 kg

DRUGS (3)
  1. VIOXX [Suspect]
     Indication: PAIN
     Route: 048
     Dates: start: 20000101, end: 20010101
  2. VIOXX [Suspect]
     Indication: ROTATOR CUFF SYNDROME
     Route: 048
     Dates: start: 20000101, end: 20010101
  3. TYLENOL (CAPLET) [Concomitant]
     Route: 065

REACTIONS (5)
  - CARDIAC DISORDER [None]
  - FACIAL PALSY [None]
  - MYOCARDIAL INFARCTION [None]
  - TIBIA FRACTURE [None]
  - TRANSIENT ISCHAEMIC ATTACK [None]
